FAERS Safety Report 9222831 (Version 1)
Quarter: 2013Q2

REPORT INFORMATION
  Report Type: Spontaneous
  Country: US (occurrence: US)
  Receive Date: 20130410
  Receipt Date: 20130410
  Transmission Date: 20140414
  Serious: Yes (Other)
  Sender: FDA-Public Use
  Company Number: US-PFIZER INC-2013108563

PATIENT
  Age: 14 Year
  Sex: Male

DRUGS (6)
  1. RIFAMPICIN [Suspect]
     Indication: TUBERCULOSIS
     Dosage: 10 MG/KG
  2. VANCOMYCIN HCL [Suspect]
     Dosage: UNK
  3. TACROLIMUS [Interacting]
     Indication: IMMUNOSUPPRESSION
     Dosage: UNK
  4. MYCOPHENOLATE MOFETIL [Concomitant]
     Indication: IMMUNOSUPPRESSION
     Dosage: UNK
  5. METHYLPREDNISOLONE [Concomitant]
     Indication: IMMUNOSUPPRESSION
     Dosage: UNK
  6. KETOCONAZOLE [Concomitant]
     Dosage: UNK

REACTIONS (16)
  - Drug interaction [Recovering/Resolving]
  - Drug level below therapeutic [Recovering/Resolving]
  - Electrocardiogram QT prolonged [Recovering/Resolving]
  - Renal failure acute [Not Recovered/Not Resolved]
  - Toxicity to various agents [Recovering/Resolving]
  - Renal tubular necrosis [Recovering/Resolving]
  - Hyperkalaemia [Recovering/Resolving]
  - Cholestasis [None]
  - Immunosuppressant drug level decreased [None]
  - Pyrexia [None]
  - Leukocytosis [None]
  - Lung consolidation [None]
  - Pleural effusion [None]
  - Pneumonia [None]
  - Nephropathy toxic [None]
  - Kidney transplant rejection [None]
